FAERS Safety Report 18115248 (Version 2)
Quarter: 2020Q3

REPORT INFORMATION
  Report Type: Spontaneous
  Country: US (occurrence: US)
  Receive Date: 20200805
  Receipt Date: 20200810
  Transmission Date: 20201103
  Serious: No
  Sender: FDA-Public Use
  Company Number: US-ALLERGAN-2024222US

PATIENT
  Age: 58 Year
  Sex: Male

DRUGS (1)
  1. CELEXA [Suspect]
     Active Substance: CITALOPRAM HYDROBROMIDE
     Indication: DEPRESSION
     Dosage: 0 MG, QD
     Route: 048
     Dates: start: 2005

REACTIONS (4)
  - Dyspepsia [Unknown]
  - Anorgasmia [Unknown]
  - Gastrooesophageal reflux disease [Unknown]
  - Constipation [Unknown]
